FAERS Safety Report 9010924 (Version 1)
Quarter: 2013Q1

REPORT INFORMATION
  Report Type: Spontaneous
  Country: US (occurrence: US)
  Receive Date: 20130109
  Receipt Date: 20130109
  Transmission Date: 20140127
  Serious: Yes (Other)
  Sender: FDA-Public Use
  Company Number: US-JNJFOC-20121213248

PATIENT
  Age: 68 Year
  Sex: Female
  Weight: 57.15 kg

DRUGS (2)
  1. BENGAY [Suspect]
     Indication: PRODUCT USED FOR UNKNOWN INDICATION
     Dosage: 6 DABS OR THE AMOUNT OF TOOTHPASTE
     Route: 061
     Dates: start: 20121218, end: 20121221
  2. BLOOD PRESSURE MEDICATION NOS [Concomitant]
     Indication: BLOOD PRESSURE
     Route: 065

REACTIONS (1)
  - Chemical injury [Recovering/Resolving]
